FAERS Safety Report 4708756-5 (Version None)
Quarter: 2005Q3

REPORT INFORMATION
  Report Type: 
  Country: None (occurrence: None)
  Receive Date: 20050706
  Receipt Date: 20050627
  Transmission Date: 20060218
  Serious: Yes (Hospitalization)
  Sender: FDA-Public Use
  Company Number: 2005JP001326

PATIENT
  Age: 58 Year
  Sex: Male

DRUGS (3)
  1. PROGRAF [Suspect]
     Indication: RENAL TRANSPLANT
  2. PREDNISONE [Concomitant]
  3. MYCOPHENOLATE MOFETIL (MYCOPHENOLATE MOFETIL) [Concomitant]

REACTIONS (5)
  - CHOLECYSTITIS INFECTIVE [None]
  - CYTOMEGALOVIRUS INFECTION [None]
  - GALLBLADDER PERFORATION [None]
  - GENERAL PHYSICAL CONDITION ABNORMAL [None]
  - HAEMOBILIA [None]
